FAERS Safety Report 8717455 (Version 3)
Quarter: 2012Q4

REPORT INFORMATION
  Report Type: 
  Country: DK (occurrence: JP)
  Receive Date: 20120810
  Receipt Date: 20120906
  Transmission Date: 20130627
  Serious: Yes (Life-Threatening)
  Sender: FDA-Public Use
  Company Number: JP-FRI-1000037712

PATIENT
  Age: 63 Year
  Sex: Male
  Weight: 54 kg

DRUGS (12)
  1. LEXAPRO [Suspect]
     Indication: DEPRESSION
     Dosage: 10 mg
     Route: 048
     Dates: start: 20120711, end: 20120718
  2. LEXAPRO [Suspect]
     Indication: DEPRESSION
     Dosage: 20 mg
     Route: 048
     Dates: start: 20120719, end: 20120723
  3. LEXAPRO [Suspect]
     Dosage: 10 mg
     Route: 048
     Dates: start: 20120724, end: 20120726
  4. REMERON [Suspect]
     Indication: DEPRESSION
     Dosage: 45 mg
     Route: 048
     Dates: start: 20120627, end: 20120731
  5. ZYPREXA [Concomitant]
     Indication: DEPRESSION
     Dosage: 2.5 mg
     Route: 048
     Dates: start: 20120606, end: 20120722
  6. ZYPREXA [Concomitant]
     Dosage: 5 mg
     Route: 048
     Dates: start: 20120723, end: 20120725
  7. ZYPREXA [Concomitant]
     Dosage: 7.5 mg
     Route: 048
     Dates: start: 20120726, end: 20120729
  8. ZYPREXA [Concomitant]
     Dosage: 10 mg
     Route: 048
     Dates: start: 20120730
  9. MEILAX [Concomitant]
     Indication: DEPRESSION
     Dosage: 2 mg
     Route: 048
     Dates: start: 20120705
  10. SOLANAX [Concomitant]
     Indication: DEPRESSION
     Dosage: 0.4 mg
     Route: 048
     Dates: start: 20120627, end: 20120731
  11. AMLODIN OD [Concomitant]
     Indication: HYPERTENSION
     Dosage: 5 mg
     Route: 048
  12. GLYCYRON [Concomitant]
     Indication: HEPATIC FUNCTION ABNORMAL
     Route: 048

REACTIONS (3)
  - Activation syndrome [Recovering/Resolving]
  - Delusion [None]
  - Hallucination [None]
